FAERS Safety Report 13194969 (Version 1)
Quarter: 2017Q1

REPORT INFORMATION
  Report Type: Report from Study
  Country: US (occurrence: US)
  Receive Date: 20170207
  Receipt Date: 20170207
  Transmission Date: 20170428
  Serious: Yes (Death)
  Sender: FDA-Public Use
  Company Number: US-EXELIXIS-CABO-16006901

PATIENT
  Sex: Male

DRUGS (13)
  1. MAGNESIUM [Concomitant]
     Active Substance: MAGNESIUM
  2. NORCO [Concomitant]
     Active Substance: ACETAMINOPHEN\HYDROCODONE BITARTRATE
  3. ALBUTEROL. [Concomitant]
     Active Substance: ALBUTEROL
  4. CABOMETYX [Suspect]
     Active Substance: CABOZANTINIB S-MALATE
     Dosage: 60 MG, QD
     Route: 048
     Dates: start: 2016
  5. MIRTAZAPINE. [Concomitant]
     Active Substance: MIRTAZAPINE
  6. BUMETANIDE. [Concomitant]
     Active Substance: BUMETANIDE
  7. CARVEDILOL. [Concomitant]
     Active Substance: CARVEDILOL
  8. VOTRIENT [Concomitant]
     Active Substance: PAZOPANIB HYDROCHLORIDE
  9. CABOMETYX [Suspect]
     Active Substance: CABOZANTINIB S-MALATE
     Indication: RENAL CANCER
     Dosage: 60 MG, QD
     Route: 048
     Dates: start: 20160625, end: 2016
  10. FLOMAX [Concomitant]
     Active Substance: TAMSULOSIN HYDROCHLORIDE
  11. COLCRYS [Concomitant]
     Active Substance: COLCHICINE
  12. PANTOPRAZOLE [Concomitant]
     Active Substance: PANTOPRAZOLE SODIUM
  13. NITROSTAT [Concomitant]
     Active Substance: NITROGLYCERIN

REACTIONS (7)
  - Death [Fatal]
  - Dysgeusia [Unknown]
  - Weight fluctuation [Unknown]
  - Decreased appetite [Unknown]
  - Blood pressure abnormal [Unknown]
  - Diarrhoea [Not Recovered/Not Resolved]
  - Parosmia [Unknown]
